FAERS Safety Report 24890200 (Version 1)
Quarter: 2025Q1

REPORT INFORMATION
  Report Type: Spontaneous
  Country: US (occurrence: US)
  Receive Date: 20250127
  Receipt Date: 20250127
  Transmission Date: 20250409
  Serious: Yes (Other)
  Sender: DR REDDYS
  Company Number: US-DRL-USA-USA/2025/01/000841

PATIENT
  Age: 22 Year
  Sex: Male

DRUGS (4)
  1. CYCLOPHOSPHAMIDE [Suspect]
     Active Substance: CYCLOPHOSPHAMIDE
     Indication: Acute leukaemia
  2. ASPARAGINASE [Suspect]
     Active Substance: ASPARAGINASE
     Indication: Acute leukaemia
  3. THIOGUANINE [Suspect]
     Active Substance: THIOGUANINE
     Indication: Acute leukaemia
  4. CYTARABINE [Suspect]
     Active Substance: CYTARABINE
     Indication: Acute leukaemia

REACTIONS (1)
  - Diffuse alopecia [Unknown]
